FAERS Safety Report 20922709 (Version 1)
Quarter: 2022Q2

REPORT INFORMATION
  Report Type: Spontaneous
  Country: GR (occurrence: GR)
  Receive Date: 20220607
  Receipt Date: 20220607
  Transmission Date: 20220721
  Serious: Yes (Other)
  Sender: FDA-Public Use
  Company Number: GR-SUN PHARMACEUTICAL INDUSTRIES LTD-2022R1-339230

PATIENT
  Age: 65 Year
  Sex: Female

DRUGS (1)
  1. MIRTAZAPINE [Suspect]
     Active Substance: MIRTAZAPINE
     Indication: Progressive multifocal leukoencephalopathy
     Dosage: 60 MILLIGRAM, QD
     Route: 065

REACTIONS (2)
  - Disease progression [Unknown]
  - Immune reconstitution inflammatory syndrome [Recovering/Resolving]
